FAERS Safety Report 10225906 (Version 2)
Quarter: 2014Q2

REPORT INFORMATION
  Report Type: Spontaneous
  Country: US (occurrence: US)
  Receive Date: 20140609
  Receipt Date: 20140609
  Transmission Date: 20141212
  Serious: No
  Sender: FDA-Public Use
  Company Number: US-ASTELLAS-2013US003902

PATIENT
  Age: 25 Year
  Sex: Male

DRUGS (2)
  1. PROGRAF [Suspect]
     Indication: CHRONIC GRAFT VERSUS HOST DISEASE
     Route: 065
  2. PROGRAF [Suspect]
     Indication: STEM CELL TRANSPLANT

REACTIONS (1)
  - Off label use [Unknown]
